FAERS Safety Report 8515557-9 (Version None)
Quarter: 2012Q3

REPORT INFORMATION
  Report Type: 
  Country: None (occurrence: None)
  Receive Date: 20120717
  Receipt Date: 20120709
  Transmission Date: 20120928
  Serious: Yes (Other)
  Sender: FDA-Public Use
  Company Number: PHHY2012JP060425

PATIENT
  Age: 81 Year
  Sex: Male

DRUGS (6)
  1. GLIMEPIRIDE [Concomitant]
     Route: 048
  2. CADUET [Concomitant]
     Route: 048
  3. MICAMLO [Concomitant]
     Route: 048
  4. LASIX [Concomitant]
     Route: 048
  5. EXELON [Suspect]
     Indication: DEMENTIA ALZHEIMER'S TYPE
     Dosage: UNK
     Route: 062
     Dates: start: 20120417, end: 20120709
  6. JANUVIA [Concomitant]
     Route: 048

REACTIONS (1)
  - PEMPHIGOID [None]
